FAERS Safety Report 4551804-6 (Version None)
Quarter: 2005Q1

REPORT INFORMATION
  Report Type: 
  Country: None (occurrence: None)
  Receive Date: 20050110
  Receipt Date: 20050103
  Transmission Date: 20050727
  Serious: Yes (Other)
  Sender: FDA-Public Use
  Company Number: 2005000903

PATIENT
  Age: 63 Year
  Sex: Female

DRUGS (2)
  1. LIPITOR [Suspect]
     Indication: HYPERCHOLESTEROLAEMIA
     Dosage: 20 MG (20 MG, 1 IN 1 D), ORAL
     Route: 048
     Dates: end: 20041224
  2. BISOPROLOL FUMARATE [Concomitant]

REACTIONS (4)
  - ARTHRALGIA [None]
  - LIVER FUNCTION TEST ABNORMAL [None]
  - PAIN [None]
  - VASCULITIS [None]
